FAERS Safety Report 4606790-7 (Version None)
Quarter: 2005Q1

REPORT INFORMATION
  Report Type: 
  Country: None (occurrence: None)
  Receive Date: 20050310
  Receipt Date: 20050225
  Transmission Date: 20050727
  Serious: Yes (Other)
  Sender: FDA-Public Use
  Company Number: 2005-BP-03445BP

PATIENT
  Age: 51 Year
  Sex: Male
  Weight: 120.6 kg

DRUGS (1)
  1. DIPYRIDAMOLE [Suspect]
     Indication: CARDIAC STRESS TEST
     Dosage: 60.1 MG (SEE TEXT, 10MG/2ML)
     Dates: start: 20041210

REACTIONS (5)
  - CHEST DISCOMFORT [None]
  - HEADACHE [None]
  - INFUSION RELATED REACTION [None]
  - MUSCULAR WEAKNESS [None]
  - THROAT TIGHTNESS [None]
